FAERS Safety Report 23143911 (Version 2)
Quarter: 2023Q4

REPORT INFORMATION
  Report Type: Report from Study
  Country: CA (occurrence: CA)
  Receive Date: 20231103
  Receipt Date: 20231128
  Transmission Date: 20240109
  Serious: Yes (Other)
  Sender: FDA-Public Use
  Company Number: CA-SANDOZ-SDZ2023CA048967

PATIENT
  Sex: Female

DRUGS (1)
  1. PIRFENIDONE [Suspect]
     Active Substance: PIRFENIDONE
     Indication: Pulmonary fibrosis
     Dosage: UNK
     Route: 048

REACTIONS (10)
  - Neoplasm malignant [Unknown]
  - Metastases to bone [Unknown]
  - Arteriosclerosis coronary artery [Unknown]
  - Muscle strength abnormal [Unknown]
  - Restrictive pulmonary disease [Unknown]
  - Lung diffusion disorder [Unknown]
  - Osteoporosis [Unknown]
  - Intervertebral disc degeneration [Unknown]
  - Hiatus hernia [Unknown]
  - Splenic calcification [Unknown]
